FAERS Safety Report 9932159 (Version 1)
Quarter: 2014Q1

REPORT INFORMATION
  Report Type: Report from Study
  Country: US (occurrence: US)
  Receive Date: 20140228
  Receipt Date: 20140228
  Transmission Date: 20141002
  Serious: No
  Sender: FDA-Public Use
  Company Number: US-ABBVIE-14P-163-1200883-00

PATIENT
  Age: 55 Year
  Sex: Male

DRUGS (3)
  1. ANDROGEL [Suspect]
     Indication: TESTICULAR DISORDER
     Route: 061
     Dates: start: 201310
  2. ACIPHEX [Concomitant]
     Indication: PRODUCT USED FOR UNKNOWN INDICATION
  3. JANUMET [Concomitant]
     Indication: PRODUCT USED FOR UNKNOWN INDICATION

REACTIONS (2)
  - Mood swings [Not Recovered/Not Resolved]
  - Emotional disorder [Not Recovered/Not Resolved]
